FAERS Safety Report 11444968 (Version 2)
Quarter: 2015Q3

REPORT INFORMATION
  Report Type: Report from Study
  Country: CN (occurrence: CN)
  Receive Date: 20150902
  Receipt Date: 20150924
  Transmission Date: 20151125
  Serious: Yes (Death, Other)
  Sender: FDA-Public Use
  Company Number: PHHY2015CN105538

PATIENT
  Sex: Female

DRUGS (2)
  1. GLIVEC [Suspect]
     Active Substance: IMATINIB MESYLATE
     Indication: GASTROINTESTINAL STROMAL TUMOUR
     Dosage: 400 MG, QD
     Route: 048
     Dates: start: 20140527, end: 201503
  2. SUNITINIB [Suspect]
     Active Substance: SUNITINIB
     Indication: GASTROINTESTINAL STROMAL TUMOUR
     Dosage: 37.5 MG, QD
     Route: 065
     Dates: start: 201503

REACTIONS (4)
  - Malignant neoplasm progression [Unknown]
  - Respiratory failure [Fatal]
  - Gastrointestinal stromal tumour [Unknown]
  - Circulatory collapse [Fatal]
